FAERS Safety Report 8880277 (Version 1)
Quarter: 2012Q4

REPORT INFORMATION
  Report Type: 
  Country: US (occurrence: US)
  Receive Date: 20121101
  Receipt Date: 20121101
  Transmission Date: 20130627
  Serious: Yes (Other)
  Sender: FDA-Public Use
  Company Number: PHHY2012US097935

PATIENT
  Age: 85 Year
  Sex: Female

DRUGS (1)
  1. HYDROXYPROPYL METHYLCELLULOSE 100 [Suspect]
     Indication: DRY EYE
     Dosage: UNK
     Dates: start: 20121027

REACTIONS (1)
  - Amaurosis fugax [Recovering/Resolving]
